FAERS Safety Report 13030616 (Version 3)
Quarter: 2017Q1

REPORT INFORMATION
  Report Type: Spontaneous
  Country: US (occurrence: US)
  Receive Date: 20161215
  Receipt Date: 20170303
  Transmission Date: 20170428
  Serious: No
  Sender: FDA-Public Use
  Company Number: US-LUNDBECK-DKLU2022761

PATIENT
  Sex: Female

DRUGS (1)
  1. NORTHERA [Suspect]
     Active Substance: DROXIDOPA
     Indication: PRODUCT USED FOR UNKNOWN INDICATION
     Dosage: SCHEDULE C, NOT TITRATING
     Route: 065
     Dates: start: 20161110

REACTIONS (5)
  - Bone pain [Unknown]
  - Pain of skin [Unknown]
  - Myalgia [Unknown]
  - Incorrect dose administered [Unknown]
  - Drug ineffective [Unknown]
